FAERS Safety Report 6873636-6 (Version None)
Quarter: 2010Q3

REPORT INFORMATION
  Report Type: 
  Country: None (occurrence: None)
  Receive Date: 20100723
  Receipt Date: 20090406
  Transmission Date: 20110219
  Serious: No
  Sender: FDA-Public Use
  Company Number: US-PFIZER INC-2009156016

PATIENT
  Sex: Male
  Weight: 80.739 kg

DRUGS (2)
  1. CHANTIX [Suspect]
     Indication: SMOKING CESSATION THERAPY
     Dosage: 0.5 MG, 1X/DAY
     Dates: start: 20090101
  2. ASACOL [Concomitant]
     Indication: CROHN'S DISEASE
     Dosage: UNK

REACTIONS (3)
  - ASTHENIA [None]
  - FATIGUE [None]
  - INSOMNIA [None]
